FAERS Safety Report 8607945 (Version 2)
Quarter: 2013Q2

REPORT INFORMATION
  Report Type: Spontaneous
  Country: US (occurrence: US)
  Receive Date: 20120611
  Receipt Date: 20130617
  Transmission Date: 20140414
  Serious: Yes (Hospitalization, Other)
  Sender: FDA-Public Use
  Company Number: US-ASTRAZENECA-2012SE35327

PATIENT
  Age: 46 Year
  Sex: Female

DRUGS (13)
  1. NEXIUM [Suspect]
     Indication: GASTROOESOPHAGEAL REFLUX DISEASE
     Route: 048
  2. PRILOSEC [Suspect]
     Route: 048
  3. PREVACID [Concomitant]
     Indication: GASTROOESOPHAGEAL REFLUX DISEASE
  4. PEPTO BISMOL [Concomitant]
     Dosage: AS NEEDED
  5. ACTONEL [Concomitant]
     Indication: OSTEOPOROSIS
  6. CALCIUM [Concomitant]
     Indication: OSTEOPOROSIS
  7. METOPROLOL [Concomitant]
     Indication: HYPERTENSION
  8. NEUROTON [Concomitant]
     Indication: NEURALGIA
  9. TRAZODONE [Concomitant]
     Indication: SLEEP DISORDER
  10. ROPINIROLE [Concomitant]
     Indication: RESTLESS LEGS SYNDROME
  11. CYMBALTA [Concomitant]
     Indication: FIBROMYALGIA
  12. BACLOFEN [Concomitant]
  13. PAXIL [Concomitant]

REACTIONS (15)
  - Ankle fracture [Unknown]
  - Accident [Unknown]
  - Hand fracture [Unknown]
  - Neoplasm malignant [Unknown]
  - Osteoporosis [Unknown]
  - Bone density decreased [Unknown]
  - Multiple fractures [Unknown]
  - Bone disorder [Unknown]
  - Calcium deficiency [Unknown]
  - Cataract [Unknown]
  - Arthritis [Unknown]
  - Hypothyroidism [Unknown]
  - Vitamin D deficiency [Unknown]
  - Fall [Unknown]
  - Depression [Unknown]
